FAERS Safety Report 15806162 (Version 2)
Quarter: 2019Q1

REPORT INFORMATION
  Report Type: Report from Study
  Country: DE (occurrence: DE)
  Receive Date: 20190110
  Receipt Date: 20190117
  Transmission Date: 20190417
  Serious: Yes (Death, Other)
  Sender: FDA-Public Use
  Company Number: DE-B.I. PHARMACEUTICALS,INC./RIDGEFIELD-2019-BI-000843

PATIENT
  Age: 78 Year
  Sex: Female
  Weight: 68 kg

DRUGS (2)
  1. FALITHROM [Concomitant]
     Active Substance: PHENPROCOUMON
     Indication: PSEUDOXANTHOMA ELASTICUM
     Route: 048
     Dates: start: 20180307
  2. GILOTRIF [Suspect]
     Active Substance: AFATINIB
     Indication: NON-SMALL CELL LUNG CANCER
     Route: 065
     Dates: start: 20180219, end: 20180309

REACTIONS (2)
  - International normalised ratio abnormal [Fatal]
  - Pseudoxanthoma elasticum [Unknown]

NARRATIVE: CASE EVENT DATE: 20180308
